FAERS Safety Report 21242986 (Version 18)
Quarter: 2025Q3

REPORT INFORMATION
  Report Type: Spontaneous
  Country: JP (occurrence: JP)
  Receive Date: 20220823
  Receipt Date: 20250924
  Transmission Date: 20251021
  Serious: Yes (Hospitalization, Other)
  Sender: ASTELLAS
  Company Number: JP-ASTELLAS-2022JP011314

PATIENT
  Age: 72 Year
  Sex: Male
  Weight: 49 kg

DRUGS (13)
  1. PADCEV [Suspect]
     Active Substance: ENFORTUMAB VEDOTIN-EJFV
     Indication: Transitional cell carcinoma
     Dosage: 3 CONSECUTIVE WEEKS, THE FOURH WEEK DRUG WITHDRAWAL
     Route: 042
     Dates: start: 20220721, end: 20220728
  2. PADCEV [Suspect]
     Active Substance: ENFORTUMAB VEDOTIN-EJFV
     Dosage: TWO CONSECUTIVE WEEKS OF TREATMENT AND TWO CONSECUTIVE WEEKS OF REST
     Route: 042
     Dates: start: 20220922, end: 202306
  3. PADCEV [Suspect]
     Active Substance: ENFORTUMAB VEDOTIN-EJFV
     Dosage: EVERY 6 WEEKS
     Route: 042
     Dates: start: 20230713
  4. PADCEV [Suspect]
     Active Substance: ENFORTUMAB VEDOTIN-EJFV
     Route: 042
     Dates: end: 20231205
  5. GEMCITABINE [Concomitant]
     Active Substance: GEMCITABINE
     Indication: Transitional cell carcinoma
     Route: 065
  6. CISPLATIN [Concomitant]
     Active Substance: CISPLATIN
     Indication: Transitional cell carcinoma
     Route: 065
  7. KEYTRUDA [Concomitant]
     Active Substance: PEMBROLIZUMAB
     Indication: Transitional cell carcinoma
     Route: 065
  8. Miya BM tablet [Concomitant]
     Indication: Gastrointestinal disorder
     Route: 065
     Dates: start: 20220712
  9. LOPERAMIDE [Concomitant]
     Active Substance: LOPERAMIDE
     Indication: Gastrointestinal disorder
     Route: 065
     Dates: start: 20220803
  10. Lactec G Injection [Concomitant]
     Indication: Gastrointestinal disorder
     Route: 065
     Dates: start: 20220803
  11. Lactec G Injection [Concomitant]
     Route: 065
     Dates: start: 20220809
  12. Physio 140 Injection [Concomitant]
     Indication: Gastrointestinal disorder
     Route: 065
     Dates: start: 20220809
  13. Cefmetazole sodium Injection [Concomitant]
     Indication: Gastrointestinal disorder
     Route: 065
     Dates: start: 20220809

REACTIONS (9)
  - Gastrointestinal disorder [Recovered/Resolved]
  - Pyrexia [Recovered/Resolved]
  - Pyelonephritis acute [Recovered/Resolved]
  - Superficial inflammatory dermatosis [Recovering/Resolving]
  - Decreased appetite [Recovered/Resolved]
  - Product use issue [Unknown]
  - Off label use [Unknown]
  - Product use issue [Unknown]
  - Off label use [Unknown]

NARRATIVE: CASE EVENT DATE: 20220803
